FAERS Safety Report 7580039-8 (Version None)
Quarter: 2011Q2

REPORT INFORMATION
  Report Type: 
  Country: None (occurrence: None)
  Receive Date: 20110629
  Receipt Date: 20110623
  Transmission Date: 20111010
  Serious: Yes (Hospitalization)
  Sender: FDA-Public Use
  Company Number: FR-SANOFI-AVENTIS-2011SA037443

PATIENT
  Age: 66 Year
  Sex: Male

DRUGS (13)
  1. POTASSIUM CHLORIDE [Concomitant]
     Route: 048
  2. FUROSEMIDE [Concomitant]
     Route: 065
  3. PROPYLTHIOURACIL [Concomitant]
     Route: 065
  4. MULTAQ [Suspect]
     Indication: ATRIAL FIBRILLATION
     Route: 048
     Dates: start: 20101201, end: 20110609
  5. PREVISCAN [Concomitant]
     Route: 048
  6. BISOPROLOL FUMARATE [Concomitant]
     Route: 048
  7. SERETIDE [Concomitant]
     Route: 065
  8. PERINDOPRIL ERBUMINE [Concomitant]
     Route: 048
  9. CITALOPRAM HYDROBROMIDE [Concomitant]
     Route: 065
  10. ESOMEPRAZOLE MAGNESIUM [Concomitant]
     Route: 048
  11. CORDARONE [Suspect]
     Indication: ATRIAL FIBRILLATION
     Route: 048
     Dates: start: 20080101, end: 20101201
  12. EZETIMIBE [Concomitant]
     Route: 048
  13. ASPIRIN [Concomitant]
     Route: 048

REACTIONS (1)
  - INTERSTITIAL LUNG DISEASE [None]
